FAERS Safety Report 10898134 (Version 1)
Quarter: 2015Q1

REPORT INFORMATION
  Report Type: Spontaneous
  Country: US (occurrence: US)
  Receive Date: 20150309
  Receipt Date: 20150309
  Transmission Date: 20150721
  Serious: Yes (Hospitalization, Other)
  Sender: FDA-Public Use
  Company Number: US-TEVA-545481USA

PATIENT
  Age: 91 Year
  Sex: Female

DRUGS (8)
  1. HALOPERIDOL. [Suspect]
     Active Substance: HALOPERIDOL
     Dosage: 1MG DAILY AS NEEDED
     Route: 065
  2. TEMAZEPAM. [Concomitant]
     Active Substance: TEMAZEPAM
     Dosage: 15MG AT BEDTIME
     Route: 065
  3. HALOPERIDOL. [Suspect]
     Active Substance: HALOPERIDOL
     Dosage: 2.5MG AS NEEDED
     Route: 030
  4. QUETIAPINE FUMARATE. [Suspect]
     Active Substance: QUETIAPINE FUMARATE
     Dosage: 25MG AT BEDTIME
     Route: 065
  5. ARIPIPRAZOLE. [Suspect]
     Active Substance: ARIPIPRAZOLE
     Dosage: 5MG AT BEDTIME AND AS NEEDED
     Route: 065
  6. CLONAZEPAM. [Suspect]
     Active Substance: CLONAZEPAM
     Dosage: 0.25MG DAILY
     Route: 065
  7. TRAZODONE [Concomitant]
     Active Substance: TRAZODONE HYDROCHLORIDE
     Dosage: 25MG AT BEDTIME
     Route: 065
  8. QUETIAPINE FUMARATE. [Suspect]
     Active Substance: QUETIAPINE FUMARATE
     Dosage: 25-50MG TWICE DAILY
     Route: 065

REACTIONS (3)
  - Electrocardiogram QT prolonged [Unknown]
  - Sedation [Unknown]
  - Akathisia [Recovering/Resolving]
